FAERS Safety Report 9164586 (Version 1)
Quarter: 2013Q1

REPORT INFORMATION
  Report Type: Spontaneous
  Country: FR (occurrence: None)
  Receive Date: 20130221
  Receipt Date: 20130221
  Transmission Date: 20140127
  Serious: Yes (Hospitalization)
  Sender: FDA-Public Use
  Company Number: FR-CLINIGEN HEALTHCARE LIMITED-003038

PATIENT
  Age: 52 Year
  Sex: Male

DRUGS (1)
  1. FOSCAVIR (FOSCAVIR) [Suspect]
     Route: 042
     Dates: start: 20121228, end: 20130107

REACTIONS (2)
  - Hypercalcaemia [None]
  - Renal failure acute [None]
